FAERS Safety Report 19192223 (Version 6)
Quarter: 2022Q1

REPORT INFORMATION
  Report Type: Report from Study
  Country: None (occurrence: US)
  Receive Date: 20210429
  Receipt Date: 20220217
  Transmission Date: 20220423
  Serious: Yes (Hospitalization, Other)
  Sender: FDA-Public Use
  Company Number: US-AKCEA THERAPEUTICS, INC.-2021IS001197

PATIENT
  Age: 82 Year
  Sex: Male
  Weight: 87.682 kg

DRUGS (31)
  1. TEGSEDI [Suspect]
     Active Substance: INOTERSEN SODIUM
     Indication: Hereditary neuropathic amyloidosis
     Route: 058
     Dates: start: 20190315
  2. DEVICE [Suspect]
     Active Substance: DEVICE
  3. TEGSEDI [Suspect]
     Active Substance: INOTERSEN SODIUM
     Route: 058
     Dates: start: 20210315, end: 202110
  4. GABAPENTIN [Concomitant]
     Active Substance: GABAPENTIN
     Route: 065
  5. ZOLOFT [Concomitant]
     Active Substance: SERTRALINE HYDROCHLORIDE
     Route: 048
     Dates: start: 20211110
  6. AMOXICILLIN [Concomitant]
     Active Substance: AMOXICILLIN
     Route: 065
  7. KETOCONAZOLE [Concomitant]
     Active Substance: KETOCONAZOLE
     Route: 061
     Dates: start: 20201230
  8. ATORVASTATIN CALCIUM [Concomitant]
     Active Substance: ATORVASTATIN CALCIUM
     Route: 048
     Dates: start: 20211110
  9. LANSOPRAZOLE [Concomitant]
     Active Substance: LANSOPRAZOLE
     Route: 048
     Dates: start: 20211110
  10. EZETIMIBE\SIMVASTATIN [Concomitant]
     Active Substance: EZETIMIBE\SIMVASTATIN
     Route: 048
  11. LOSARTAN POTASSIUM [Concomitant]
     Active Substance: LOSARTAN POTASSIUM
     Route: 048
     Dates: start: 20211110
  12. LEVOTHYROXINE [Concomitant]
     Active Substance: LEVOTHYROXINE
     Route: 048
     Dates: start: 20211110
  13. ASPIRIN [Concomitant]
     Active Substance: ASPIRIN
     Route: 048
  14. AMLODIPINE BESYLATE [Concomitant]
     Active Substance: AMLODIPINE BESYLATE
     Route: 048
     Dates: start: 20211110
  15. ERGOCALCIFEROL [Concomitant]
     Active Substance: ERGOCALCIFEROL
     Route: 048
  16. METOPROLOL SUCCINATE [Concomitant]
     Active Substance: METOPROLOL SUCCINATE
     Route: 065
     Dates: start: 20211110
  17. VITAMIN B12 [Concomitant]
     Active Substance: CYANOCOBALAMIN
     Route: 048
  18. FOLIC ACID [Concomitant]
     Active Substance: FOLIC ACID
     Route: 065
  19. TEGSEDI [Suspect]
     Active Substance: INOTERSEN SODIUM
     Route: 058
     Dates: end: 202111
  20. TEGSEDI [Suspect]
     Active Substance: INOTERSEN SODIUM
     Route: 065
     Dates: start: 202103
  21. GABAPENTIN [Concomitant]
     Active Substance: GABAPENTIN
     Route: 048
     Dates: start: 20210908
  22. ASPIRIN [Concomitant]
     Active Substance: ASPIRIN
     Route: 048
     Dates: start: 20220121
  23. ERGOCALCIFEROL [Concomitant]
     Active Substance: ERGOCALCIFEROL
     Route: 048
  24. XARELTO [Concomitant]
     Active Substance: RIVAROXABAN
     Route: 065
     Dates: start: 20220120, end: 20220202
  25. XARELTO [Concomitant]
     Active Substance: RIVAROXABAN
     Route: 048
     Dates: start: 20220203
  26. BENZONATATE [Concomitant]
     Active Substance: BENZONATATE
     Route: 065
     Dates: start: 20220120, end: 20220127
  27. OXYCODONE [Concomitant]
     Active Substance: OXYCODONE
     Route: 048
     Dates: start: 20220120, end: 20220130
  28. SENNA LEAF [Concomitant]
     Active Substance: SENNA LEAF
     Route: 048
     Dates: start: 20220120
  29. EZETIMIBE [Concomitant]
     Active Substance: EZETIMIBE
     Route: 048
     Dates: start: 20211110
  30. TRIAZOLAM [Concomitant]
     Active Substance: TRIAZOLAM
     Route: 048
     Dates: start: 20210427
  31. FLUTICASONE [Concomitant]
     Active Substance: FLUTICASONE
     Route: 045
     Dates: start: 20220108

REACTIONS (22)
  - Blood creatinine abnormal [Unknown]
  - Protein urine present [Unknown]
  - Platelet count decreased [Recovered/Resolved]
  - Urine protein/creatinine ratio abnormal [Unknown]
  - Bacterial test positive [Unknown]
  - Pain in extremity [Unknown]
  - Peripheral artery occlusion [Recovered/Resolved]
  - Peripheral embolism [Unknown]
  - Toe amputation [Recovered/Resolved]
  - Skin discolouration [Not Recovered/Not Resolved]
  - Skin warm [Unknown]
  - Crystal urine present [Unknown]
  - Urinary casts [Unknown]
  - Erythema [Not Recovered/Not Resolved]
  - Peripheral artery stenosis [Unknown]
  - Embolism [Unknown]
  - Osteomyelitis acute [Unknown]
  - Coombs direct test positive [Unknown]
  - Extremity necrosis [Unknown]
  - Fat necrosis [Unknown]
  - Haematoma [Unknown]
  - Anaemia [Unknown]

NARRATIVE: CASE EVENT DATE: 20210911
